FAERS Safety Report 5153584-2 (Version None)
Quarter: 2006Q4

REPORT INFORMATION
  Report Type: 
  Country: None (occurrence: None)
  Receive Date: 20061113
  Receipt Date: 20061028
  Transmission Date: 20070319
  Serious: Yes (Other)
  Sender: FDA-Public Use
  Company Number: 2006132737

PATIENT
  Sex: Male

DRUGS (2)
  1. LYRICA [Suspect]
     Indication: BACK PAIN
     Dosage: ORAL
     Route: 048
     Dates: start: 20060401, end: 20060401
  2. LORAZEPAM [Concomitant]

REACTIONS (5)
  - ABASIA [None]
  - DYSGRAPHIA [None]
  - FIBROMYALGIA [None]
  - SOMNOLENCE [None]
  - TREMOR [None]
